FAERS Safety Report 4297570-3 (Version None)
Quarter: 2004Q1

REPORT INFORMATION
  Report Type: 
  Country: None (occurrence: None)
  Receive Date: 20040217
  Receipt Date: 20040217
  Transmission Date: 20041129
  Serious: Yes (Hospitalization)
  Sender: FDA-Public Use
  Company Number: None

PATIENT
  Age: 35 Year
  Sex: Female
  Weight: 63.5036 kg

DRUGS (1)
  1. AMOXICILLIN AND CLAVULANATE POTASSIUM [Suspect]
     Indication: PHARYNGITIS STREPTOCOCCAL
     Dosage: 875 Q 12 HOURS ORAL
     Route: 048

REACTIONS (5)
  - CLOSTRIDIAL INFECTION [None]
  - COLITIS [None]
  - DIARRHOEA [None]
  - NAUSEA [None]
  - VOMITING [None]
